FAERS Safety Report 18656224 (Version 1)
Quarter: 2020Q4

REPORT INFORMATION
  Report Type: Spontaneous
  Country: NO (occurrence: NO)
  Receive Date: 20201223
  Receipt Date: 20201223
  Transmission Date: 20210114
  Serious: No
  Sender: FDA-Public Use
  Company Number: NO-ALKEM LABORATORIES LIMITED-NO-ALKEM-2020-05949

PATIENT
  Sex: Female

DRUGS (1)
  1. METFORMIN HYDROCHLORIDE. [Suspect]
     Active Substance: METFORMIN HYDROCHLORIDE
     Indication: HYPERANDROGENISM
     Dosage: 2000 MILLIGRAM, QD
     Route: 065

REACTIONS (7)
  - Nausea [Unknown]
  - Abdominal distension [Unknown]
  - Dysgeusia [Unknown]
  - Abdominal pain [Unknown]
  - Vomiting [Unknown]
  - Exposure during pregnancy [Unknown]
  - Diarrhoea [Unknown]
